FAERS Safety Report 10006099 (Version 1)
Quarter: 2014Q1

REPORT INFORMATION
  Report Type: Spontaneous
  Country: US (occurrence: US)
  Receive Date: 20140313
  Receipt Date: 20140313
  Transmission Date: 20141002
  Serious: No
  Sender: FDA-Public Use
  Company Number: US-BAYER-2014-037782

PATIENT
  Age: 57 Year
  Sex: Female

DRUGS (1)
  1. CIPRO [Suspect]

REACTIONS (2)
  - Drug hypersensitivity [None]
  - Vomiting [None]
